FAERS Safety Report 7605932-9 (Version None)
Quarter: 2011Q3

REPORT INFORMATION
  Report Type: 
  Country: None (occurrence: None)
  Receive Date: 20110713
  Receipt Date: 20110629
  Transmission Date: 20111222
  Serious: Yes (Hospitalization, Other)
  Sender: FDA-Public Use
  Company Number: PHHY2011BR57928

PATIENT
  Sex: Female

DRUGS (4)
  1. NPH INSULIN [Concomitant]
     Indication: DIABETES MELLITUS
     Dosage: 2 DF, BID IN MORNING AND NIGHT
     Route: 058
  2. EXFORGE [Suspect]
     Indication: HYPERTENSION
     Dosage: 160 MG OF VALS AND 5 MG OF AMLO, DAILY
     Route: 048
  3. BETACARD PLUS [Concomitant]
     Indication: CARDIAC DISORDER
     Dosage: 50 MG OF ATEN AND 12.5 MG OF CHLORA, UNK
     Route: 048
  4. CLONAZEPAM [Concomitant]
     Indication: FEELING OF RELAXATION
     Dosage: 1 DF,AT NIGHT
     Route: 048

REACTIONS (2)
  - GASTROINTESTINAL DISORDER [None]
  - CROHN'S DISEASE [None]
